FAERS Safety Report 7019973-6 (Version None)
Quarter: 2010Q3

REPORT INFORMATION
  Report Type: 
  Country: None (occurrence: None)
  Receive Date: 20100929
  Receipt Date: 20100920
  Transmission Date: 20110219
  Serious: Yes (Other)
  Sender: FDA-Public Use
  Company Number: US-RB-014029-10

PATIENT
  Age: 87 Year
  Sex: Female

DRUGS (1)
  1. MUCINEX [Suspect]
     Dosage: PRODUCT TAKEN FOR 6 DOSES.
     Route: 048
     Dates: start: 20100917

REACTIONS (3)
  - DIZZINESS [None]
  - HYPERTENSION [None]
  - NAUSEA [None]
